FAERS Safety Report 8414172-5 (Version None)
Quarter: 2012Q2

REPORT INFORMATION
  Report Type: 
  Country: None (occurrence: None)
  Receive Date: 20120605
  Receipt Date: 20120531
  Transmission Date: 20120825
  Serious: Yes (Other)
  Sender: FDA-Public Use
  Company Number: US-NAPPMUNDI-USA-2012-0087864

PATIENT
  Sex: Female

DRUGS (1)
  1. BUTRANS [Suspect]
     Indication: FIBROMYALGIA
     Route: 062

REACTIONS (2)
  - PERICARDIAL EFFUSION [None]
  - INTENTIONAL DRUG MISUSE [None]
